FAERS Safety Report 16198925 (Version 5)
Quarter: 2019Q3

REPORT INFORMATION
  Report Type: Report from Study
  Country: IT (occurrence: IT)
  Receive Date: 20190415
  Receipt Date: 20190701
  Transmission Date: 20191004
  Serious: Yes (Hospitalization, Other)
  Sender: FDA-Public Use
  Company Number: IT-MYLANLABS-2019M1034884

PATIENT
  Age: 80 Year
  Sex: Female

DRUGS (2)
  1. CITALOPRAM [Suspect]
     Active Substance: CITALOPRAM HYDROBROMIDE
     Dosage: 600 MILLIGRAM, TOTAL
     Route: 048
  2. CITALOPRAM [Suspect]
     Active Substance: CITALOPRAM HYDROBROMIDE
     Indication: HYPOVITAMINOSIS
     Dosage: 1 DOSAGE FORM, TOTAL
     Route: 048
     Dates: start: 20181026, end: 20181026

REACTIONS (5)
  - Malaise [Unknown]
  - Tremor [Unknown]
  - Vomiting [Recovered/Resolved]
  - Drug abuse [Unknown]
  - Medication error [Recovered/Resolved]

NARRATIVE: CASE EVENT DATE: 20181026
